FAERS Safety Report 9330332 (Version 2)
Quarter: 2015Q4

REPORT INFORMATION
  Report Type: Report from Study
  Country: US (occurrence: US)
  Receive Date: 20130605
  Receipt Date: 20151022
  Transmission Date: 20160305
  Serious: Yes (Hospitalization)
  Sender: FDA-Public Use
  Company Number: US-ROCHE-1231825

PATIENT
  Sex: Female

DRUGS (14)
  1. DOLOPHINE [Concomitant]
     Active Substance: METHADONE HYDROCHLORIDE
  2. LASIX [Concomitant]
     Active Substance: FUROSEMIDE
  3. ZESTRIL [Concomitant]
     Active Substance: LISINOPRIL
  4. COPEGUS [Suspect]
     Active Substance: RIBAVIRIN
     Indication: CHRONIC HEPATITIS C
     Dosage: 200 MG PILLS
     Route: 048
     Dates: start: 20130224
  5. PEGASYS [Suspect]
     Active Substance: PEGINTERFERON ALFA-2A
     Indication: CHRONIC HEPATITIS C
     Route: 058
     Dates: start: 20130224
  6. INCIVEK [Suspect]
     Active Substance: TELAPREVIR
     Indication: CHRONIC HEPATITIS C
     Route: 065
     Dates: start: 20130224, end: 20130520
  7. ZANTAC [Concomitant]
     Active Substance: RANITIDINE HYDROCHLORIDE
  8. ULTRAM [Concomitant]
     Active Substance: TRAMADOL HYDROCHLORIDE
  9. ESTRACE [Concomitant]
     Active Substance: ESTRADIOL
  10. KLOR-CON [Concomitant]
     Active Substance: POTASSIUM CHLORIDE
  11. TOPAMAX [Concomitant]
     Active Substance: TOPIRAMATE
  12. GLUCOPHAGE [Concomitant]
     Active Substance: METFORMIN HYDROCHLORIDE
  13. PRILOSEC [Concomitant]
     Active Substance: OMEPRAZOLE MAGNESIUM
  14. NORVASC [Concomitant]
     Active Substance: AMLODIPINE BESYLATE

REACTIONS (10)
  - Dizziness [Recovered/Resolved]
  - Platelet count decreased [Not Recovered/Not Resolved]
  - Skin exfoliation [Recovered/Resolved]
  - Dyspnoea [Recovering/Resolving]
  - Dehydration [Recovered/Resolved]
  - Dysstasia [Recovered/Resolved]
  - Abasia [Recovered/Resolved]
  - Anaemia [Not Recovered/Not Resolved]
  - Dry skin [Recovered/Resolved]
  - Skin wrinkling [Recovered/Resolved]
